FAERS Safety Report 4963267-7 (Version None)
Quarter: 2006Q2

REPORT INFORMATION
  Report Type: 
  Country: None (occurrence: None)
  Receive Date: 20060405
  Receipt Date: 20041012
  Transmission Date: 20061013
  Serious: Yes (Life-Threatening, Hospitalization, Disabling)
  Sender: FDA-Public Use
  Company Number: US-MERCK-0410USA01822

PATIENT
  Age: 59 Year
  Sex: Female
  Weight: 73 kg

DRUGS (14)
  1. VIOXX [Suspect]
     Indication: ARTHRITIS
     Route: 048
     Dates: start: 20000701, end: 20040901
  2. COUMADIN [Concomitant]
     Indication: DEEP VEIN THROMBOSIS
     Route: 065
     Dates: start: 19900101
  3. [THERAPY UNSPECIFIED] [Concomitant]
     Route: 065
  4. NITRO [Concomitant]
     Route: 065
  5. TYLENOL W/ CODEINE NO. 3 [Concomitant]
     Route: 065
  6. GLUCOPHAGE [Concomitant]
     Indication: DIABETES MELLITUS
     Route: 065
  7. LIPITOR [Concomitant]
     Indication: BLOOD CHOLESTEROL INCREASED
     Route: 065
     Dates: start: 20060101
  8. METOPROLOL [Concomitant]
     Indication: HYPERTENSION
     Route: 065
  9. LASIX [Concomitant]
     Indication: HYPERTENSION
     Route: 065
  10. LASIX [Concomitant]
     Indication: OEDEMA PERIPHERAL
     Route: 065
  11. CELEBREX [Suspect]
     Indication: ARTHRITIS
     Route: 048
     Dates: start: 19990101, end: 20000901
  12. K-DUR 10 [Concomitant]
     Route: 065
  13. CRESTOR [Concomitant]
     Indication: BLOOD CHOLESTEROL INCREASED
     Route: 065
     Dates: end: 20060101
  14. PRILOSEC [Concomitant]
     Indication: GASTROOESOPHAGEAL REFLUX DISEASE
     Route: 048

REACTIONS (3)
  - CARDIAC DISORDER [None]
  - GOUT [None]
  - MYOCARDIAL INFARCTION [None]
